FAERS Safety Report 13543985 (Version 3)
Quarter: 2017Q4

REPORT INFORMATION
  Report Type: Report from Study
  Country: RS (occurrence: RS)
  Receive Date: 20170515
  Receipt Date: 20171010
  Transmission Date: 20180320
  Serious: Yes (Death, Hospitalization)
  Sender: FDA-Public Use
  Company Number: RS-ROCHE-1857084

PATIENT
  Age: 57 Year
  Sex: Female
  Weight: 56.7 kg

DRUGS (23)
  1. ZOLOFT [Concomitant]
     Active Substance: SERTRALINE HYDROCHLORIDE
     Route: 065
     Dates: start: 20100817, end: 20170330
  2. VANCOMYCIN [Concomitant]
     Active Substance: VANCOMYCIN
     Route: 042
     Dates: start: 20170321, end: 20170325
  3. IMIPENEM [Concomitant]
     Active Substance: IMIPENEM
     Route: 042
     Dates: start: 20170116, end: 20170119
  4. BENSEDIN [Concomitant]
     Route: 048
     Dates: start: 20170116, end: 20170122
  5. FRAXIPARIN [Concomitant]
     Active Substance: NADROPARIN CALCIUM
     Route: 058
     Dates: start: 20170117, end: 20170122
  6. FOLIC ACID. [Concomitant]
     Active Substance: FOLIC ACID
     Route: 065
     Dates: start: 20170130, end: 20170330
  7. NIFELAT [Concomitant]
     Active Substance: ATENOLOL\NIFEDIPINE
     Route: 048
     Dates: start: 20170116
  8. ZODOL (SERBIA) [Concomitant]
     Route: 048
     Dates: start: 20170118
  9. RANITIDINE. [Concomitant]
     Active Substance: RANITIDINE
     Route: 042
     Dates: start: 20170118, end: 20170122
  10. DULCOLAX (BISACODYL) [Concomitant]
     Active Substance: BISACODYL
     Route: 048
     Dates: start: 20170116
  11. ZODOL (SERBIA) [Concomitant]
     Route: 048
  12. OCRELIZUMAB. [Suspect]
     Active Substance: OCRELIZUMAB
     Indication: RELAPSING-REMITTING MULTIPLE SCLEROSIS
     Dosage: ADMINISTERED ON DAY 1 AND DAY 15 OF EVERY 24 WEEK CYCLE.
     Route: 042
     Dates: start: 20131125
  13. FOLAN [Concomitant]
     Active Substance: FOLIC ACID
     Route: 065
     Dates: start: 20160921
  14. SIRDALUD [Concomitant]
     Active Substance: TIZANIDINE
     Route: 065
     Dates: start: 20110718, end: 20170330
  15. MIRACID [Concomitant]
     Indication: URINARY TRACT INFECTION
     Route: 042
     Dates: start: 20161118, end: 20161125
  16. LONGACEPH [Concomitant]
     Route: 042
     Dates: start: 20170220, end: 20170225
  17. NOVALGETOL [Concomitant]
     Active Substance: METAMIZOLE
     Route: 030
     Dates: start: 20170120
  18. RANITIDINE. [Concomitant]
     Active Substance: RANITIDINE
     Route: 042
     Dates: start: 20170117
  19. OCRELIZUMAB. [Suspect]
     Active Substance: OCRELIZUMAB
     Indication: RELAPSING-REMITTING MULTIPLE SCLEROSIS
     Dosage: MOST RECENT DOSE PRIOR TO WORSENING OF URINARY INFECTION ONSET: 21/SEP/2016?MOST RECENT DOSE PRIOR T
     Route: 042
     Dates: start: 20131125
  20. NIFELAT [Concomitant]
     Active Substance: ATENOLOL\NIFEDIPINE
     Route: 048
     Dates: start: 20170117
  21. NIFELAT [Concomitant]
     Active Substance: ATENOLOL\NIFEDIPINE
     Route: 048
     Dates: start: 20170119, end: 20170121
  22. BACTRIM [Concomitant]
     Active Substance: SULFAMETHOXAZOLE\TRIMETHOPRIM
     Route: 065
     Dates: start: 20170221, end: 20170223
  23. LASIX [Concomitant]
     Active Substance: FUROSEMIDE
     Route: 030
     Dates: start: 20170116

REACTIONS (2)
  - Urinary tract infection [Recovered/Resolved]
  - Urosepsis [Fatal]

NARRATIVE: CASE EVENT DATE: 20161106
